FAERS Safety Report 17989169 (Version 3)
Quarter: 2021Q2

REPORT INFORMATION
  Report Type: Spontaneous
  Country: JP (occurrence: JP)
  Receive Date: 20200707
  Receipt Date: 20210628
  Transmission Date: 20210717
  Serious: Yes (Other)
  Sender: FDA-Public Use
  Company Number: JP-TEVA-2020-JP-1796814

PATIENT
  Age: 48 Year
  Sex: Male

DRUGS (3)
  1. IMMUNE?GLOBULIN [Concomitant]
     Indication: PEMPHIGOID
     Route: 042
  2. PHENYTOIN. [Interacting]
     Active Substance: PHENYTOIN
     Indication: EPILEPSY
     Route: 065
  3. PREDNISOLONE. [Suspect]
     Active Substance: PREDNISOLONE
     Indication: PEMPHIGOID
     Route: 065

REACTIONS (3)
  - Therapeutic product effect decreased [Unknown]
  - Drug interaction [Unknown]
  - Contraindicated product administered [Unknown]
